FAERS Safety Report 17097173 (Version 1)
Quarter: 2019Q4

REPORT INFORMATION
  Report Type: Spontaneous
  Country: US (occurrence: US)
  Receive Date: 20191129
  Receipt Date: 20191129
  Transmission Date: 20200122
  Serious: No
  Sender: FDA-Public Use
  Company Number: None

PATIENT
  Age: 73 Year
  Sex: Female
  Weight: 92.25 kg

DRUGS (5)
  1. AMLODOPINE BESYLATE [Concomitant]
     Active Substance: AMLODIPINE BESYLATE
  2. CLARITIN [Concomitant]
     Active Substance: LORATADINE
  3. NEOMYCIN AND POLYMYXIN B SULFATES AND HYDROCORTISONE [Suspect]
     Active Substance: HYDROCORTISONE\NEOMYCIN SULFATE\POLYMYXIN B SULFATE
     Indication: EAR INFECTION
     Dosage: ?          QUANTITY:2 DROP(S);?
     Route: 001
     Dates: start: 20191124, end: 20191124
  4. WOMENS ONE A DAY VITAMIN [Concomitant]
  5. CALCIUM [Concomitant]
     Active Substance: CALCIUM

REACTIONS (2)
  - Burning sensation mucosal [None]
  - Epistaxis [None]

NARRATIVE: CASE EVENT DATE: 20191124
